FAERS Safety Report 8786086 (Version 2)
Quarter: 2012Q4

REPORT INFORMATION
  Report Type: 
  Country: BR (occurrence: BR)
  Receive Date: 20120914
  Receipt Date: 20120921
  Transmission Date: 20130627
  Serious: Yes (Death, Hospitalization, Other)
  Sender: FDA-Public Use
  Company Number: BR-VERTEX PHARMACEUTICAL INC.-2012-021200

PATIENT
  Age: 54 Year
  Sex: Female

DRUGS (3)
  1. INCIVO [Suspect]
     Indication: HEPATITIS C
     Dosage: UNK
     Route: 065
     Dates: end: 201208
  2. INTERFERON [Concomitant]
     Indication: PRODUCT USED FOR UNKNOWN INDICATION
     Dosage: UNK
     Route: 065
  3. RIBAVIRIN [Concomitant]
     Indication: PRODUCT USED FOR UNKNOWN INDICATION
     Dosage: UNK
     Route: 065

REACTIONS (9)
  - Death [Fatal]
  - Staphylococcal infection [Not Recovered/Not Resolved]
  - Anaemia [Unknown]
  - Pain [Unknown]
  - Abscess [Recovered/Resolved]
  - Skin lesion [Not Recovered/Not Resolved]
  - Hypotension [Unknown]
  - Tachycardia [Unknown]
  - Pyrexia [Unknown]
